FAERS Safety Report 24720505 (Version 1)
Quarter: 2024Q4

REPORT INFORMATION
  Report Type: Other
  Country: IN (occurrence: IN)
  Receive Date: 20241211
  Receipt Date: 20241211
  Transmission Date: 20250115
  Serious: Yes (Death, Hospitalization)
  Sender: ANI
  Company Number: IN-ANIPHARMA-013111

PATIENT
  Age: 71 Year
  Sex: Female

DRUGS (4)
  1. CIPROFLOXACIN [Suspect]
     Active Substance: CIPROFLOXACIN
     Indication: Endophthalmitis
     Dosage: SYSTEMIC ANTIBACTERIAL THERAPY
     Route: 048
  2. CEFTAZIDIME [Concomitant]
     Active Substance: CEFTAZIDIME
     Indication: Endophthalmitis
     Dosage: SYSTEMIC ANTIBACTERIAL THERAPY
  3. VANCOMYCIN [Concomitant]
     Active Substance: VANCOMYCIN
     Indication: Endophthalmitis
     Dosage: INTRAOCULAR ANTIBACTERIAL THERAPY
  4. AMIKACIN [Concomitant]
     Active Substance: AMIKACIN
     Indication: Endophthalmitis
     Dosage: INTRAOCULAR ANTIBACTERIAL THERAPY

REACTIONS (1)
  - Drug ineffective [Fatal]
